FAERS Safety Report 18193828 (Version 1)
Quarter: 2020Q3

REPORT INFORMATION
  Report Type: Spontaneous
  Country: US (occurrence: US)
  Receive Date: 20200825
  Receipt Date: 20200825
  Transmission Date: 20201103
  Serious: No
  Sender: FDA-Public Use
  Company Number: US-ROCHE-2363171

PATIENT
  Sex: Female

DRUGS (3)
  1. PEGASYS [Suspect]
     Active Substance: PEGINTERFERON ALFA-2A
     Indication: PRODUCT USED FOR UNKNOWN INDICATION
     Dosage: VIAL 180 MCG ML (45 MCG OR 0.25 ML)
     Route: 058
     Dates: start: 201903
  2. VITAMIN C [Concomitant]
     Active Substance: ASCORBIC ACID
  3. ASPIRIN 81 [Concomitant]
     Active Substance: ASPIRIN

REACTIONS (2)
  - Injection site erythema [Not Recovered/Not Resolved]
  - Pruritus [Not Recovered/Not Resolved]
